FAERS Safety Report 6632455-6 (Version None)
Quarter: 2010Q1

REPORT INFORMATION
  Report Type: 
  Country: None (occurrence: None)
  Receive Date: 20100312
  Receipt Date: 20100218
  Transmission Date: 20100710
  Serious: No
  Sender: FDA-Public Use
  Company Number: US-BIOGENIDEC-2010BI005523

PATIENT
  Age: 54 Year
  Sex: Female

DRUGS (5)
  1. AVONEX [Suspect]
     Indication: MULTIPLE SCLEROSIS
     Route: 030
     Dates: start: 20090217, end: 20090101
  2. AVONEX [Suspect]
     Route: 030
     Dates: start: 20090101
  3. AVONEX [Suspect]
     Route: 030
     Dates: start: 20090101
  4. AVONEX [Suspect]
     Route: 030
     Dates: start: 20090101
  5. AVONEX [Suspect]
     Route: 030
     Dates: start: 20090101

REACTIONS (10)
  - INFLUENZA [None]
  - INJECTION SITE HAEMATOMA [None]
  - INJECTION SITE HAEMORRHAGE [None]
  - INJECTION SITE MASS [None]
  - INJECTION SITE PAIN [None]
  - MIGRAINE [None]
  - PHARYNGEAL ULCERATION [None]
  - PNEUMONIA [None]
  - PYREXIA [None]
  - SINUSITIS [None]
